FAERS Safety Report 8265279-7 (Version None)
Quarter: 2012Q2

REPORT INFORMATION
  Report Type: 
  Country: None (occurrence: None)
  Receive Date: 20120406
  Receipt Date: 20120403
  Transmission Date: 20120825
  Serious: Yes (Death)
  Sender: FDA-Public Use
  Company Number: JP-SANOFI-AVENTIS-2012SA005751

PATIENT
  Age: 50 Year
  Sex: Male
  Weight: 64 kg

DRUGS (39)
  1. OXALIPLATIN [Suspect]
     Route: 041
     Dates: start: 20110512, end: 20110512
  2. OXALIPLATIN [Suspect]
     Route: 041
     Dates: start: 20110922, end: 20110922
  3. XELODA [Suspect]
     Route: 048
     Dates: start: 20110810, end: 20110824
  4. DEXAMETHASONE TAB [Concomitant]
     Dates: start: 20110214, end: 20110215
  5. MAGNESIUM OXIDE [Concomitant]
     Dates: start: 20110214
  6. XELODA [Suspect]
     Route: 048
     Dates: start: 20110630, end: 20110714
  7. DEXAMETHASONE SODIUM PHOSPHATE [Concomitant]
  8. OXALIPLATIN [Suspect]
     Route: 041
     Dates: start: 20110420, end: 20110420
  9. OXALIPLATIN [Suspect]
     Route: 041
     Dates: start: 20110630, end: 20110630
  10. OXALIPLATIN [Suspect]
     Route: 041
     Dates: start: 20110831, end: 20110831
  11. AVASTIN [Suspect]
     Route: 041
     Dates: start: 20110512, end: 20110512
  12. AVASTIN [Suspect]
     Route: 041
     Dates: start: 20110721, end: 20110721
  13. AVASTIN [Suspect]
     Route: 041
     Dates: start: 20110922, end: 20110922
  14. ALOXI [Concomitant]
     Dates: start: 20110214, end: 20110922
  15. OXALIPLATIN [Suspect]
     Route: 041
     Dates: start: 20110601, end: 20110601
  16. XELODA [Suspect]
     Indication: COLON CANCER
     Route: 048
     Dates: start: 20110214, end: 20110228
  17. XELODA [Suspect]
     Route: 048
     Dates: start: 20110309, end: 20110323
  18. XELODA [Suspect]
     Route: 048
     Dates: start: 20110922, end: 20111006
  19. AVASTIN [Suspect]
     Route: 041
     Dates: start: 20110601, end: 20110601
  20. OXALIPLATIN [Suspect]
     Route: 041
     Dates: start: 20110309, end: 20110309
  21. AVASTIN [Suspect]
     Route: 041
     Dates: start: 20110630, end: 20110630
  22. AVASTIN [Suspect]
     Route: 041
     Dates: start: 20110831, end: 20110831
  23. OXALIPLATIN [Suspect]
     Route: 041
     Dates: start: 20110721, end: 20110721
  24. XELODA [Suspect]
     Route: 048
     Dates: start: 20110512, end: 20110526
  25. XELODA [Suspect]
     Route: 048
     Dates: start: 20110601, end: 20110615
  26. XELODA [Suspect]
     Route: 048
     Dates: start: 20110721, end: 20110804
  27. XELODA [Suspect]
     Route: 048
     Dates: start: 20110831, end: 20110914
  28. AVASTIN [Suspect]
     Route: 041
     Dates: start: 20110810, end: 20110810
  29. GASMOTIN [Concomitant]
     Dates: start: 20110214
  30. LAC B [Concomitant]
     Dosage: FORM:POWDER(EXCEPT:DPO)
     Dates: start: 20110214
  31. XELODA [Suspect]
     Route: 048
     Dates: start: 20110330, end: 20110413
  32. XELODA [Suspect]
     Route: 048
     Dates: start: 20110420, end: 20110504
  33. AVASTIN [Suspect]
     Route: 041
     Dates: start: 20110330, end: 20110330
  34. AVASTIN [Suspect]
     Route: 041
     Dates: start: 20110420, end: 20110420
  35. OXALIPLATIN [Suspect]
     Indication: COLON CANCER
     Dosage: DOSE: 129.4 MG/M2
     Route: 041
     Dates: start: 20110214, end: 20110214
  36. OXALIPLATIN [Suspect]
     Route: 041
     Dates: start: 20110330, end: 20110330
  37. OXALIPLATIN [Suspect]
     Route: 041
     Dates: start: 20110810, end: 20110810
  38. AVASTIN [Suspect]
     Indication: COLON CANCER
     Route: 041
     Dates: start: 20110309, end: 20110309
  39. AVASTIN [Suspect]
     Route: 041
     Dates: start: 20110601, end: 20110601

REACTIONS (1)
  - HEPATIC FAILURE [None]
